FAERS Safety Report 12432114 (Version 1)
Quarter: 2016Q2

REPORT INFORMATION
  Report Type: Spontaneous
  Country: US (occurrence: US)
  Receive Date: 20160603
  Receipt Date: 20160603
  Transmission Date: 20160815
  Serious: No
  Sender: FDA-Public Use
  Company Number: US-THE MEDICINES COMPANY-US-MDCO-16-00102

PATIENT
  Age: 56 Year
  Sex: Female

DRUGS (3)
  1. ORBACTIV [Suspect]
     Active Substance: ORITAVANCIN
     Indication: BETA HAEMOLYTIC STREPTOCOCCAL INFECTION
     Route: 042
  2. ORBACTIV [Suspect]
     Active Substance: ORITAVANCIN
     Indication: STAPHYLOCOCCAL INFECTION
  3. ORBACTIV [Suspect]
     Active Substance: ORITAVANCIN
     Indication: ABSCESS LIMB
     Route: 042
     Dates: start: 20160116, end: 20160116

REACTIONS (2)
  - Back pain [Unknown]
  - Off label use [Unknown]
